FAERS Safety Report 26122515 (Version 1)
Quarter: 2025Q4

REPORT INFORMATION
  Report Type: Spontaneous
  Country: US (occurrence: None)
  Receive Date: 20251204
  Receipt Date: 20251204
  Transmission Date: 20260117
  Serious: No
  Sender: FDA-CTU
  Company Number: None

PATIENT
  Age: 37 Year
  Sex: Female

DRUGS (1)
  1. XOLAIR [Suspect]
     Active Substance: OMALIZUMAB
     Dosage: 2 ML 14 DAYS SUBCUTANEOUS ?
     Route: 058
     Dates: start: 20250820

REACTIONS (1)
  - Injection site rash [None]

NARRATIVE: CASE EVENT DATE: 20251203
